FAERS Safety Report 14346601 (Version 1)
Quarter: 2018Q1

REPORT INFORMATION
  Report Type: Spontaneous
  Country: RS (occurrence: RS)
  Receive Date: 20180103
  Receipt Date: 20180103
  Transmission Date: 20180509
  Serious: Yes (Other)
  Sender: FDA-Public Use
  Company Number: RS-MYLANLABS-2017M1082505

PATIENT
  Age: 45 Year
  Sex: Female
  Weight: 72 kg

DRUGS (2)
  1. BRUFEN? [Suspect]
     Active Substance: IBUPROFEN
     Indication: BACK PAIN
     Dosage: 600 MG, TOTAL
     Route: 048
     Dates: start: 20171126, end: 20171126
  2. MYDOCALM                           /00293002/ [Suspect]
     Active Substance: TOLPERISONE HYDROCHLORIDE
     Indication: BACK PAIN
     Dosage: 1 TOTAL
     Route: 048
     Dates: start: 20171126, end: 20171126

REACTIONS (2)
  - Angioedema [Recovering/Resolving]
  - Circulatory collapse [Recovering/Resolving]

NARRATIVE: CASE EVENT DATE: 20171126
